FAERS Safety Report 6879248-2 (Version None)
Quarter: 2010Q3

REPORT INFORMATION
  Report Type: 
  Country: None (occurrence: None)
  Receive Date: 20100728
  Receipt Date: 20100113
  Transmission Date: 20110219
  Serious: No
  Sender: FDA-Public Use
  Company Number: US-ABBOTT-10P-163-0619106-00

PATIENT
  Sex: Female
  Weight: 61.29 kg

DRUGS (2)
  1. SYNTHROID [Suspect]
     Indication: THYROIDECTOMY
     Route: 048
     Dates: start: 20020101, end: 20070101
  2. SYNTHROID [Suspect]
     Route: 048
     Dates: start: 20070101

REACTIONS (1)
  - NERVOUSNESS [None]
